FAERS Safety Report 7716952-8 (Version None)
Quarter: 2011Q3

REPORT INFORMATION
  Report Type: 
  Country: None (occurrence: None)
  Receive Date: 20110829
  Receipt Date: 20110829
  Transmission Date: 20111222
  Serious: Yes (Other)
  Sender: FDA-Public Use
  Company Number: DE-ABBOTT-10P-062-0682835-00

PATIENT
  Sex: Female

DRUGS (7)
  1. VOLTAREN [Concomitant]
     Indication: PSORIATIC ARTHROPATHY
  2. LEVOTHYROXINE SODIUM [Concomitant]
     Indication: PRODUCT USED FOR UNKNOWN INDICATION
  3. HUMIRA [Suspect]
     Dates: start: 20110501, end: 20110701
  4. HUMIRA [Suspect]
     Indication: PSORIATIC ARTHROPATHY
     Route: 058
     Dates: start: 20100329, end: 20101004
  5. BISOPROLOL FUMARATE [Concomitant]
     Indication: PRODUCT USED FOR UNKNOWN INDICATION
  6. CORTISONE ACETATE [Concomitant]
     Indication: PRODUCT USED FOR UNKNOWN INDICATION
  7. CORTISONE ACETATE [Concomitant]
     Indication: PSORIATIC ARTHROPATHY

REACTIONS (9)
  - DRUG INEFFECTIVE [None]
  - DRY MOUTH [None]
  - DRY SKIN [None]
  - AFFECT LABILITY [None]
  - PULMONARY MASS [None]
  - DYSPNOEA [None]
  - SINUS CONGESTION [None]
  - SLEEP DISORDER [None]
  - HYPERHIDROSIS [None]
